FAERS Safety Report 7359029-6 (Version None)
Quarter: 2011Q1

REPORT INFORMATION
  Report Type: 
  Country: None (occurrence: None)
  Receive Date: 20110317
  Receipt Date: 20110311
  Transmission Date: 20110831
  Serious: Yes (Other)
  Sender: FDA-Public Use
  Company Number: US-ABBOTT-11P-163-0711287-00

PATIENT
  Age: 57 Year
  Sex: Female

DRUGS (12)
  1. SIMVASTATIN [Concomitant]
     Indication: BLOOD CHOLESTEROL
  2. CYPROHEPTAVINE [Concomitant]
     Indication: HYPERSENSITIVITY
  3. HUMIRA [Suspect]
     Indication: RHEUMATOID ARTHRITIS
     Dates: start: 20091001
  4. HYDROCODONE BITARTRATE [Concomitant]
     Indication: PAIN
     Dosage: 10/500
  5. METHOTREXATE [Concomitant]
     Indication: RHEUMATOID ARTHRITIS
     Dosage: 2.5MG X 6 PILLS EVERY MONDAY
  6. LYRICA [Concomitant]
     Indication: FIBROMYALGIA
  7. XANAX [Concomitant]
     Indication: ANXIETY
  8. AMITRIPTYLINE [Concomitant]
     Indication: DEPRESSION
  9. SOMA [Concomitant]
     Indication: PRODUCT USED FOR UNKNOWN INDICATION
  10. PLAVIX [Concomitant]
     Indication: PRODUCT USED FOR UNKNOWN INDICATION
  11. TRAMADOL HCL [Concomitant]
     Indication: PAIN
  12. ALBUTEROL [Concomitant]
     Indication: HYPERSENSITIVITY

REACTIONS (8)
  - OEDEMA PERIPHERAL [None]
  - INTERVERTEBRAL DISC PROTRUSION [None]
  - WEIGHT DECREASED [None]
  - PAIN IN EXTREMITY [None]
  - HYPOAESTHESIA [None]
  - AMNESIA [None]
  - CEREBROVASCULAR ACCIDENT [None]
  - ARTHRALGIA [None]
